FAERS Safety Report 24268638 (Version 2)
Quarter: 2024Q3

REPORT INFORMATION
  Report Type: Spontaneous
  Country: US (occurrence: US)
  Receive Date: 20240830
  Receipt Date: 20240925
  Transmission Date: 20241016
  Serious: Yes (Other)
  Sender: DR REDDYS
  Company Number: None

PATIENT
  Age: 8 Year
  Sex: Male
  Weight: 27.5 kg

DRUGS (13)
  1. BUDESONIDE [Suspect]
     Active Substance: BUDESONIDE
     Indication: Reactive gastropathy
     Dosage: 3 TID, ORALLY
     Route: 048
  2. BUDESONIDE [Suspect]
     Active Substance: BUDESONIDE
     Indication: Iron deficiency anaemia
  3. BUDESONIDE [Suspect]
     Active Substance: BUDESONIDE
     Indication: Hypoalbuminaemia
  4. OMEPRAZOLE [Concomitant]
     Active Substance: OMEPRAZOLE
     Indication: Hypereosinophilic syndrome
  5. OMEPRAZOLE [Concomitant]
     Active Substance: OMEPRAZOLE
     Indication: Eosinophilic oesophagitis
  6. OMEPRAZOLE [Concomitant]
     Active Substance: OMEPRAZOLE
     Indication: Hypoalbuminaemia
  7. OMEPRAZOLE [Concomitant]
     Active Substance: OMEPRAZOLE
     Indication: Eosinophilic gastritis
  8. OMEPRAZOLE [Concomitant]
     Active Substance: OMEPRAZOLE
     Indication: Iron deficiency anaemia
  9. BENRALIZUMAB [Concomitant]
     Active Substance: BENRALIZUMAB
     Indication: Eosinophilic oesophagitis
     Route: 058
  10. BENRALIZUMAB [Concomitant]
     Active Substance: BENRALIZUMAB
     Indication: Hypereosinophilic syndrome
  11. BENRALIZUMAB [Concomitant]
     Active Substance: BENRALIZUMAB
     Indication: Iron deficiency anaemia
  12. BENRALIZUMAB [Concomitant]
     Active Substance: BENRALIZUMAB
     Indication: Hypoalbuminaemia
  13. BENRALIZUMAB [Concomitant]
     Active Substance: BENRALIZUMAB
     Indication: Eosinophilic gastritis

REACTIONS (2)
  - Adrenal insufficiency [Recovering/Resolving]
  - Wrong technique in product usage process [Unknown]
